FAERS Safety Report 16205373 (Version 3)
Quarter: 2021Q3

REPORT INFORMATION
  Report Type: Report from Study
  Country: CA (occurrence: CA)
  Receive Date: 20190417
  Receipt Date: 20210924
  Transmission Date: 20211014
  Serious: Yes (Hospitalization, Disabling, Other)
  Sender: FDA-Public Use
  Company Number: CA-TAKEDA-2019TUS022874

PATIENT
  Age: 67 Year
  Sex: Female
  Weight: 76 kg

DRUGS (5)
  1. METFORMIN [Concomitant]
     Active Substance: METFORMIN HYDROCHLORIDE
     Dosage: 2000 MILLIGRAM
  2. IXAZOMIB [Suspect]
     Active Substance: IXAZOMIB
     Indication: PLASMA CELL MYELOMA
     Dosage: 4 MILLIGRAM, UNK
     Route: 048
     Dates: start: 20181108
  3. APIXABAN [Concomitant]
     Active Substance: APIXABAN
     Dosage: 5 MILLIGRAM
     Dates: start: 201802
  4. CARBAMAZEPINE. [Concomitant]
     Active Substance: CARBAMAZEPINE
     Indication: NEURALGIA
     Dosage: UNK
     Route: 065
  5. ACYCLOVIR                          /00587301/ [Concomitant]
     Active Substance: ACYCLOVIR
     Dosage: 800 MILLIGRAM
     Dates: start: 201712

REACTIONS (2)
  - Fall [Unknown]
  - Central cord syndrome [Recovering/Resolving]

NARRATIVE: CASE EVENT DATE: 20190110
